FAERS Safety Report 9247837 (Version 3)
Quarter: 2013Q3

REPORT INFORMATION
  Report Type: Spontaneous
  Country: US (occurrence: US)
  Receive Date: 20130423
  Receipt Date: 20130927
  Transmission Date: 20140515
  Serious: Yes (Hospitalization, Disabling, Other)
  Sender: FDA-Public Use
  Company Number: US-ASTRAZENECA-2013SE27180

PATIENT
  Age: 45 Year
  Sex: Female
  Weight: 59 kg

DRUGS (19)
  1. NEXIUM [Suspect]
     Indication: GASTROOESOPHAGEAL REFLUX DISEASE
     Route: 048
  2. NEXIUM [Suspect]
     Indication: GASTROOESOPHAGEAL REFLUX DISEASE
     Route: 048
     Dates: start: 2001
  3. NEXIUM [Suspect]
     Indication: GASTROOESOPHAGEAL REFLUX DISEASE
     Dosage: 40MG, ONCE A DAY AND THEN TWICE A DAY
     Route: 048
     Dates: start: 20021016
  4. NEXIUM [Suspect]
     Indication: GASTROOESOPHAGEAL REFLUX DISEASE
     Route: 048
     Dates: start: 20021016
  5. NEXIUM [Suspect]
     Indication: GASTROOESOPHAGEAL REFLUX DISEASE
     Route: 048
     Dates: start: 20100329
  6. OMEPRAZOLE [Suspect]
     Indication: ULCER
     Route: 048
     Dates: start: 20091216, end: 201003
  7. OMEPRAZOLE [Suspect]
     Indication: GASTROOESOPHAGEAL REFLUX DISEASE
     Route: 048
     Dates: start: 20091216, end: 201003
  8. LORTAB [Concomitant]
     Indication: NECK PAIN
  9. LORTAB [Concomitant]
     Indication: BACK PAIN
  10. XANAX [Concomitant]
     Indication: ANXIETY
  11. LEVOTHYROXINE [Concomitant]
     Dates: start: 20021029
  12. LEVOTHYROXINE [Concomitant]
     Dates: start: 20021016
  13. LIPITOR [Concomitant]
     Dates: start: 20021029
  14. HYZAAR [Concomitant]
     Dosage: 50/12.5
     Dates: start: 20021016
  15. CHLORZOXAZONE [Concomitant]
     Dates: start: 20020820
  16. ZYRTEC [Concomitant]
     Dates: start: 20020810
  17. CEPHALEXIN [Concomitant]
     Dates: start: 20020729
  18. PROPOXYPHENE,APAP [Concomitant]
     Dosage: 100/650
     Dates: start: 20020716
  19. CLINDAMYCIN [Concomitant]
     Dates: start: 20020503

REACTIONS (21)
  - Pneumonia [Unknown]
  - Hypoglycaemia [Unknown]
  - Neoplasm malignant [Unknown]
  - Gastric disorder [Unknown]
  - Intestinal obstruction [Unknown]
  - Arthropathy [Unknown]
  - Malnutrition [Unknown]
  - Limb discomfort [Unknown]
  - Gallbladder disorder [Unknown]
  - Osteoporosis [Unknown]
  - Bone disorder [Unknown]
  - Multiple fractures [Unknown]
  - Osteopenia [Unknown]
  - Vitamin D deficiency [Unknown]
  - Anorexia nervosa [Unknown]
  - Calcium deficiency [Unknown]
  - Chronic obstructive pulmonary disease [Unknown]
  - Diabetes mellitus [Unknown]
  - Hyperparathyroidism [Unknown]
  - Pain [Unknown]
  - Depression [Unknown]
